FAERS Safety Report 5043810-2 (Version None)
Quarter: 2006Q3

REPORT INFORMATION
  Report Type: 
  Country: None (occurrence: None)
  Receive Date: 20060706
  Receipt Date: 20060626
  Transmission Date: 20061208
  Serious: Yes (Hospitalization)
  Sender: FDA-Public Use
  Company Number: FR-JNJFOC-20060605721

PATIENT
  Age: 60 Year
  Sex: Male

DRUGS (6)
  1. HALDOL [Suspect]
     Dosage: PATIENT TOOK 3 TIMES DOSE
     Route: 048
  2. HALDOL [Suspect]
     Indication: DRUG USE FOR UNKNOWN INDICATION
     Route: 048
  3. NOZINAN [Suspect]
     Dosage: PATIENT TOOK 3 TIMES DOSE
     Route: 048
  4. NOZINAN [Suspect]
     Indication: DRUG USE FOR UNKNOWN INDICATION
     Route: 048
  5. HEPTAMYL [Concomitant]
  6. AKINETON [Concomitant]

REACTIONS (15)
  - ACCIDENTAL OVERDOSE [None]
  - BLOOD BICARBONATE INCREASED [None]
  - BLOOD PH DECREASED [None]
  - CHRONIC OBSTRUCTIVE PULMONARY DISEASE [None]
  - COUGH [None]
  - DYSPNOEA [None]
  - HYPERCAPNIA [None]
  - INCORRECT DOSE ADMINISTERED [None]
  - LUNG DISORDER [None]
  - OXYGEN SATURATION DECREASED [None]
  - PCO2 INCREASED [None]
  - PURULENCE [None]
  - RESPIRATORY ACIDOSIS [None]
  - RESPIRATORY RATE INCREASED [None]
  - SOMNOLENCE [None]
